FAERS Safety Report 6698763 (Version 3)
Quarter: 2015Q3

REPORT INFORMATION
  Report Type: Spontaneous
  Country: US (occurrence: US)
  Receive Date: 20080714
  Receipt Date: 20150803
  Transmission Date: 20151125
  Serious: Yes (Other)
  Sender: FDA-Public Use
  Company Number: US-GILEAD-2008-0016450

PATIENT
  Age: 88 Year
  Sex: Male

DRUGS (3)
  1. LASIX [Concomitant]
     Active Substance: FUROSEMIDE
  2. LETAIRIS [Suspect]
     Active Substance: AMBRISENTAN
  3. BUMEX [Concomitant]
     Active Substance: BUMETANIDE

REACTIONS (3)
  - Dyspnoea [Recovered/Resolved]
  - Weight increased [None]
  - Generalised oedema [None]
